FAERS Safety Report 18708466 (Version 3)
Quarter: 2021Q4

REPORT INFORMATION
  Report Type: Report from Study
  Country: CA (occurrence: CA)
  Receive Date: 20210106
  Receipt Date: 20211210
  Transmission Date: 20220304
  Serious: Yes (Hospitalization)
  Sender: FDA-Public Use
  Company Number: CA-BRISTOL-MYERS SQUIBB COMPANY-BMS-2021-000396

PATIENT
  Age: 55 Year
  Sex: Male

DRUGS (2)
  1. ABATACEPT [Suspect]
     Active Substance: ABATACEPT
     Indication: Rheumatoid arthritis
     Dosage: 1000 MILLIGRAM, Q4WK
     Route: 042
     Dates: start: 20171103
  2. PREDNISONE [Concomitant]
     Active Substance: PREDNISONE
     Indication: Rheumatoid arthritis
     Dosage: 10 MILLIGRAM, SINCE MANY YEARS
     Route: 048

REACTIONS (3)
  - Orchitis [Recovered/Resolved]
  - Streptococcal infection [Unknown]
  - Furuncle [Unknown]

NARRATIVE: CASE EVENT DATE: 20201205
